FAERS Safety Report 25224788 (Version 1)
Quarter: 2025Q2

REPORT INFORMATION
  Report Type: Spontaneous
  Country: GB (occurrence: GB)
  Receive Date: 20250422
  Receipt Date: 20250422
  Transmission Date: 20250716
  Serious: Yes (Hospitalization, Disabling, Other)
  Sender: ACCORD
  Company Number: None

PATIENT
  Age: 75 Year
  Sex: Female

DRUGS (9)
  1. ROSUVASTATIN CALCIUM [Suspect]
     Active Substance: ROSUVASTATIN CALCIUM
     Indication: Product used for unknown indication
     Dosage: 5MG ON
  2. BUMETANIDE [Concomitant]
     Active Substance: BUMETANIDE
     Dosage: 2MG MORNING AND 2MG LUNCH
  3. BUPRENORPHINE [Concomitant]
     Active Substance: BUPRENORPHINE
     Dosage: 10MICROGRAMS/HOUR TRANSDERMAL PATCHES, 1 PATCH WEEKLY
  4. CITALOPRAM [Concomitant]
     Active Substance: CITALOPRAM
  5. BISOPROLOL [Concomitant]
     Active Substance: BISOPROLOL
  6. GABAPENTIN [Concomitant]
     Active Substance: GABAPENTIN
  7. APIXABAN [Concomitant]
     Active Substance: APIXABAN
  8. LANSOPRAZOLE [Concomitant]
     Active Substance: LANSOPRAZOLE
     Dosage: 15MG OM
  9. RAMIPRIL [Concomitant]
     Active Substance: RAMIPRIL

REACTIONS (2)
  - Chronic obstructive pulmonary disease [Unknown]
  - Alanine aminotransferase increased [Unknown]

NARRATIVE: CASE EVENT DATE: 20250324
